FAERS Safety Report 4578692-6 (Version None)
Quarter: 2005Q1

REPORT INFORMATION
  Report Type: 
  Country: None (occurrence: None)
  Receive Date: 20050209
  Receipt Date: 20050209
  Transmission Date: 20050727
  Serious: Yes (Disabling)
  Sender: FDA-Public Use
  Company Number: None

PATIENT
  Age: 47 Year
  Sex: Female
  Weight: 61.2356 kg

DRUGS (1)
  1. COLD EEZE NASAL SPRAY     THE QUIGLEY CORPORATION [Suspect]
     Dosage: 2 - 3X/DAY    NASAL
     Route: 045
     Dates: start: 20041223, end: 20041226

REACTIONS (3)
  - ANOSMIA [None]
  - DYSGEUSIA [None]
  - THERAPY NON-RESPONDER [None]
